FAERS Safety Report 4275432-5 (Version None)
Quarter: 2004Q1

REPORT INFORMATION
  Report Type: 
  Country: None (occurrence: None)
  Receive Date: 20040116
  Receipt Date: 20040107
  Transmission Date: 20041129
  Serious: Yes (Hospitalization, Other)
  Sender: FDA-Public Use
  Company Number: 2003119112

PATIENT
  Age: 54 Year
  Sex: Female
  Weight: 90.7194 kg

DRUGS (11)
  1. LIPITOR [Suspect]
     Indication: BLOOD CHOLESTEROL INCREASED
     Dosage: 10 MG (DAILY), ORAL
     Route: 048
     Dates: end: 20030501
  2. MYCOPHENOLATE MOFETIL (MYCOPHENOLATE MOFETIL) [Suspect]
     Indication: RENAL TRANSPLANT
  3. CYCLOSPORINE [Concomitant]
  4. PREDNISONE [Concomitant]
  5. AZATHIOPRINE [Concomitant]
  6. HYZAAR [Concomitant]
  7. AMLODIPINE BESYLATE [Concomitant]
  8. PROVELLA-14 (MEDROXYPROGESTERONE ACETATE, ESTROGENS CONJUGATED) [Concomitant]
  9. ALLOPURINOL [Concomitant]
  10. SIROLIMUS (SIROLIMUS) [Concomitant]
  11. OMEPRAZOLE [Concomitant]

REACTIONS (14)
  - ASTHENIA [None]
  - BLOOD CHLORIDE INCREASED [None]
  - BLOOD CREATININE DECREASED [None]
  - BLOOD ELECTROLYTES ABNORMAL [None]
  - BLOOD MAGNESIUM DECREASED [None]
  - DIARRHOEA [None]
  - IMMUNOSUPPRESSANT DRUG LEVEL INCREASED [None]
  - MITOCHONDRIAL MYOPATHY [None]
  - MYOPATHY [None]
  - RENAL FAILURE ACUTE [None]
  - RENAL TUBULAR ACIDOSIS [None]
  - TRANSPLANT FAILURE [None]
  - URATE NEPHROPATHY [None]
  - URINARY TRACT INFECTION [None]
